FAERS Safety Report 17746807 (Version 1)
Quarter: 2020Q2

REPORT INFORMATION
  Report Type: Report from Study
  Country: ES (occurrence: ES)
  Receive Date: 20200505
  Receipt Date: 20200505
  Transmission Date: 20200714
  Serious: Yes (Other)
  Sender: FDA-Public Use
  Company Number: ES-UCBSA-2020017768

PATIENT

DRUGS (2)
  1. BRIVARACETAM [Suspect]
     Active Substance: BRIVARACETAM
     Indication: EPILEPSY
     Dosage: INITIAL MEAN DOSAGE OF 2.8 MG/KG/DAY, WITH A MEDIAN DOSAGE OF 2 MG/KG/DAY
  2. BRIVARACETAM [Suspect]
     Active Substance: BRIVARACETAM
     Dosage: MEDIAN DOSE AT 12 MONTHS OF 2.55 MG/KG/DAY

REACTIONS (9)
  - Irritability [Unknown]
  - Somnolence [Unknown]
  - Seizure [Unknown]
  - Aggression [Unknown]
  - Rash [Unknown]
  - Drug ineffective [Unknown]
  - Dizziness [Unknown]
  - Insomnia [Unknown]
  - Diarrhoea [Unknown]
